FAERS Safety Report 4736488-6 (Version None)
Quarter: 2005Q3

REPORT INFORMATION
  Report Type: 
  Country: None (occurrence: None)
  Receive Date: 20050804
  Receipt Date: 20050721
  Transmission Date: 20060218
  Serious: Yes (Hospitalization)
  Sender: FDA-Public Use
  Company Number: FABR-11087

PATIENT
  Age: 60 Year
  Sex: Male
  Weight: 71 kg

DRUGS (2)
  1. FABRAZYME [Suspect]
     Indication: FABRY'S DISEASE
     Dosage: 1 MG/KG Q2WKS IV
     Route: 042
     Dates: start: 20030709, end: 20050308
  2. FABRAZYME [Suspect]
     Indication: FABRY'S DISEASE
     Dosage: 3 MG/KG Q2WKS IV
     Route: 042
     Dates: start: 20030424, end: 20030626

REACTIONS (10)
  - ABDOMINAL PAIN [None]
  - DIARRHOEA [None]
  - DISEASE PROGRESSION [None]
  - GENERAL PHYSICAL HEALTH DETERIORATION [None]
  - HAEMODIALYSIS [None]
  - INTESTINAL ISCHAEMIA [None]
  - KIDNEY TRANSPLANT REJECTION [None]
  - MALAISE [None]
  - RENAL FAILURE [None]
  - VOMITING [None]
